FAERS Safety Report 16106014 (Version 1)
Quarter: 2019Q1

REPORT INFORMATION
  Report Type: Report from Study
  Country: None (occurrence: AR)
  Receive Date: 20190322
  Receipt Date: 20190322
  Transmission Date: 20190418
  Serious: Yes (Hospitalization, Other)
  Sender: FDA-Public Use
  Company Number: AR-ABBVIE-19K-007-2713513-00

PATIENT
  Sex: Female

DRUGS (1)
  1. HUMIRA [Suspect]
     Active Substance: ADALIMUMAB
     Indication: RHEUMATOID ARTHRITIS
     Route: 058
     Dates: start: 20170718

REACTIONS (5)
  - Device dislocation [Unknown]
  - Joint arthroplasty [Unknown]
  - Arthropathy [Unknown]
  - Fall [Unknown]
  - Immobile [Unknown]

NARRATIVE: CASE EVENT DATE: 2018
